FAERS Safety Report 17884663 (Version 1)
Quarter: 2020Q2

REPORT INFORMATION
  Report Type: Spontaneous
  Country: US (occurrence: US)
  Receive Date: 20200611
  Receipt Date: 20200611
  Transmission Date: 20200714
  Serious: Yes (Other)
  Sender: FDA-Public Use
  Company Number: US-MYLANLABS-2020M1055305

PATIENT
  Age: 41 Year
  Sex: Male

DRUGS (9)
  1. BOTULINUM TOXIN TYPE A [Suspect]
     Active Substance: BOTULINUM TOXIN TYPE A
     Indication: NEUROPATHY PERIPHERAL
     Dosage: 200 UNITS IN A 1X1CM GRID PATTERN EVENLY OVER THE DISTAL PLANTAR AND DORSAL SURFACES OF BOTH FEET
     Route: 058
  2. VINCRISTINE [Suspect]
     Active Substance: VINCRISTINE
     Indication: B-CELL LYMPHOMA
     Dosage: HYPERCVAD CHEMOTHERAPY
     Route: 065
  3. CYTARABINE. [Suspect]
     Active Substance: CYTARABINE
     Indication: B-CELL LYMPHOMA
     Dosage: HYPERCVAD CHEMOTHERAPY
     Route: 065
  4. DEXAMETHASONE. [Suspect]
     Active Substance: DEXAMETHASONE
     Indication: B-CELL LYMPHOMA
     Dosage: HYPERCVAD CHEMOTHERAPY
     Route: 065
  5. DOXORUBICIN [Suspect]
     Active Substance: DOXORUBICIN
     Indication: B-CELL LYMPHOMA
     Dosage: HYPERCVAD CHEMOTHERAPY
     Route: 065
  6. PREGABALIN. [Suspect]
     Active Substance: PREGABALIN
     Indication: NEUROPATHY PERIPHERAL
     Route: 065
  7. CYCLOPHOSPHAMIDE. [Suspect]
     Active Substance: CYCLOPHOSPHAMIDE
     Indication: B-CELL LYMPHOMA
     Dosage: HYPERCVAD CHEMOTHERAPY
     Route: 065
  8. METHOTREXATE. [Suspect]
     Active Substance: METHOTREXATE
     Indication: B-CELL LYMPHOMA
     Dosage: HYPERCVAD CHEMOTHERAPY
     Route: 065
  9. BOTULINUM TOXIN TYPE A [Suspect]
     Active Substance: BOTULINUM TOXIN TYPE A
     Dosage: 400 UNITS GIVEN EVERY 5 MONTHS
     Route: 058

REACTIONS (2)
  - Drug ineffective [Unknown]
  - Neuropathy peripheral [Recovering/Resolving]
